FAERS Safety Report 7490664-0 (Version None)
Quarter: 2011Q2

REPORT INFORMATION
  Report Type: 
  Country: None (occurrence: None)
  Receive Date: 20110519
  Receipt Date: 20110517
  Transmission Date: 20111010
  Serious: Yes (Other)
  Sender: FDA-Public Use
  Company Number: DE-SANOFI-AVENTIS-2010SA030997

PATIENT
  Age: 50 Year
  Sex: Female

DRUGS (1)
  1. ARAVA [Suspect]
     Indication: RHEUMATOID ARTHRITIS
     Route: 048
     Dates: start: 20100511, end: 20110321

REACTIONS (4)
  - LUNG NEOPLASM MALIGNANT [None]
  - FATIGUE [None]
  - ALOPECIA [None]
  - RASH PUSTULAR [None]
